FAERS Safety Report 10509030 (Version 1)
Quarter: 2014Q4

REPORT INFORMATION
  Report Type: Spontaneous
  Country: US (occurrence: US)
  Receive Date: 20141009
  Receipt Date: 20141009
  Transmission Date: 20150528
  Serious: Yes (Other)
  Sender: FDA-Public Use
  Company Number: US-B.I. PHARMACEUTICALS,INC./RIDGEFIELD-2014-BI-47736BP

PATIENT
  Age: 65 Year
  Sex: Male

DRUGS (2)
  1. PRADAXA [Suspect]
     Active Substance: DABIGATRAN ETEXILATE MESYLATE
     Indication: PRODUCT USED FOR UNKNOWN INDICATION
     Route: 065
  2. ZYPREXA [Concomitant]
     Active Substance: OLANZAPINE
     Indication: PRODUCT USED FOR UNKNOWN INDICATION
     Route: 065

REACTIONS (9)
  - Thrombocytopenia [Unknown]
  - Tricuspid valve incompetence [Unknown]
  - Mitral valve incompetence [Unknown]
  - Post procedural haematoma [Unknown]
  - Mitral valve prolapse [Unknown]
  - Aortic valve sclerosis [Unknown]
  - Mitral valve stenosis [Unknown]
  - Pneumothorax [Unknown]
  - Acute kidney injury [Recovered/Resolved]

NARRATIVE: CASE EVENT DATE: 201111
